FAERS Safety Report 18605993 (Version 2)
Quarter: 2021Q1

REPORT INFORMATION
  Report Type: Report from Study
  Country: US (occurrence: US)
  Receive Date: 20201211
  Receipt Date: 20210107
  Transmission Date: 20210419
  Serious: No
  Sender: FDA-Public Use
  Company Number: US-IPSEN BIOPHARMACEUTICALS, INC.-2020-23995

PATIENT
  Age: 43 Year
  Sex: Male

DRUGS (1)
  1. SOMATULINE DEPOT [Suspect]
     Active Substance: LANREOTIDE ACETATE
     Indication: ACROMEGALY
     Dosage: 120 MG EVERY MONTH
     Route: 065

REACTIONS (3)
  - Inappropriate schedule of product administration [Unknown]
  - Product administration error [Unknown]
  - Muscle strain [Unknown]

NARRATIVE: CASE EVENT DATE: 202011
